FAERS Safety Report 10388856 (Version 1)
Quarter: 2014Q1

REPORT INFORMATION
  Report Type: Spontaneous
  Country: US (occurrence: None)
  Receive Date: 20140306
  Receipt Date: 20140306
  Transmission Date: 20141002
  Serious: Yes (Hospitalization)
  Sender: FDA-Public Use
  Company Number: 163-21880-13094377

PATIENT
  Age: 65 Year
  Sex: Male

DRUGS (9)
  1. REVLIMID (LENALIDOMIDE) (CAPSULES) [Suspect]
     Indication: PLASMA CELL MYELOMA
     Dosage: 21 IN 21 D, PO
     Route: 048
     Dates: start: 20130910, end: 2013
  2. NOVOLIN 70/30 (HUMAN MIXTARD) [Concomitant]
  3. LANTUS (INSULIN GLARGINE) [Concomitant]
  4. PREDNISONE [Concomitant]
  5. FENOFIBRATE [Concomitant]
  6. GLIPIZIDE [Concomitant]
  7. MAGNESIUM OXIDE [Concomitant]
  8. CALCITRIOL [Concomitant]
  9. CELLCEPT (MYCOPHENOLATE MOFETIL) [Concomitant]

REACTIONS (5)
  - Dyspnoea [None]
  - Pneumocystis jirovecii pneumonia [None]
  - Fatigue [None]
  - Thrombocytopenia [None]
  - Contusion [None]
